FAERS Safety Report 5826835-6 (Version None)
Quarter: 2008Q3

REPORT INFORMATION
  Report Type: 
  Country: None (occurrence: None)
  Receive Date: 20080729
  Receipt Date: 20080729
  Transmission Date: 20090109
  Serious: Yes (Hospitalization)
  Sender: FDA-Public Use
  Company Number: None

PATIENT
  Age: 30 Year
  Sex: Male
  Weight: 68 kg

DRUGS (11)
  1. BEVACIZUMAB (GENENTECH) [Suspect]
     Indication: ANAPLASTIC ASTROCYTOMA
     Dosage: 10MG/KG QOW CYCLE 4:
     Dates: start: 20080602
  2. BEVACIZUMAB (GENENTECH) [Suspect]
     Indication: ANAPLASTIC ASTROCYTOMA
     Dosage: 10MG/KG QOW CYCLE 4:
     Dates: start: 20080616
  3. BEVACIZUMAB (GENENTECH) [Suspect]
     Indication: ANAPLASTIC ASTROCYTOMA
     Dosage: 10MG/KG QOW CYCLE 4:
     Dates: start: 20080630
  4. ERLOTINIB (GENENTECH) [Suspect]
     Indication: ANAPLASTIC ASTROCYTOMA
     Dosage: 200MG PO QD  CYCLE 4
     Route: 048
     Dates: start: 20080602, end: 20080702
  5. CEPHALEXIN [Concomitant]
  6. ACIPHEX [Concomitant]
  7. SENOKOT [Concomitant]
  8. CONCERTA [Concomitant]
  9. DIOVAN [Concomitant]
  10. KEPPRA [Concomitant]
  11. HYDROCORTISONE [Concomitant]

REACTIONS (6)
  - CONVULSION [None]
  - DEPRESSED LEVEL OF CONSCIOUSNESS [None]
  - GENERAL PHYSICAL HEALTH DETERIORATION [None]
  - MOBILITY DECREASED [None]
  - MUSCULAR WEAKNESS [None]
  - SPEECH DISORDER [None]
